FAERS Safety Report 22363511 (Version 1)
Quarter: 2023Q2

REPORT INFORMATION
  Report Type: Spontaneous
  Country: PT (occurrence: PT)
  Receive Date: 20230525
  Receipt Date: 20230525
  Transmission Date: 20230722
  Serious: Yes (Other)
  Sender: FDA-Public Use
  Company Number: PT-MYLANLABS-2022M1009776

PATIENT
  Age: 33 Year
  Sex: Female

DRUGS (1)
  1. CARBAMAZEPINE [Interacting]
     Active Substance: CARBAMAZEPINE
     Indication: Epilepsy
     Dosage: 800 MG, QD (400 MG, TWO TIMES A DAY)
     Route: 065

REACTIONS (3)
  - Ectopic pregnancy [Unknown]
  - Drug interaction [Unknown]
  - Maternal exposure during pregnancy [Unknown]
